FAERS Safety Report 10302084 (Version 1)
Quarter: 2014Q3

REPORT INFORMATION
  Report Type: Spontaneous
  Country: GB (occurrence: None)
  Receive Date: 20140709
  Receipt Date: 20140709
  Transmission Date: 20150326
  Serious: Yes (Other)
  Sender: FDA-Public Use
  Company Number: SYM-2014-22660

PATIENT
  Age: 55 Year

DRUGS (7)
  1. METRONIDAZOLE (METRONIDAZOLE) [Suspect]
     Active Substance: METRONIDAZOLE
     Indication: CLOSTRIDIUM DIFFICILE COLITIS
     Route: 048
     Dates: start: 20140422, end: 20140427
  2. THIAMINE (THIAMINE) [Concomitant]
  3. PARACETAMOL (PARACETAMOL) [Concomitant]
     Active Substance: ACETAMINOPHEN
  4. DIFFLAM (BENZYDAMINE HYDROCHLORIDE) (BENZYDAMINE HYDROCHLORIDE) [Concomitant]
  5. ADCAL-D3 (LEKOVIT CA) (COLECALCIFEROL, CALCIUM CARBONATE) [Concomitant]
  6. CLEXANE (ENOXAPARIN SODIUM) (ENOXAPARIN SODIUM) [Concomitant]
  7. VANCOMYCIN HYDROCHLORIDE (VANCOMYCIN HYDROCHLORIDE) [Concomitant]
     Active Substance: VANCOMYCIN HYDROCHLORIDE

REACTIONS (4)
  - Visual acuity reduced [None]
  - Hypoacusis [None]
  - Dry skin [None]
  - Neuropathy peripheral [None]

NARRATIVE: CASE EVENT DATE: 20140426
